FAERS Safety Report 15812881 (Version 1)
Quarter: 2019Q1

REPORT INFORMATION
  Report Type: Spontaneous
  Country: AT (occurrence: AT)
  Receive Date: 20190111
  Receipt Date: 20190111
  Transmission Date: 20190417
  Serious: Yes (Other)
  Sender: FDA-Public Use
  Company Number: AT-009507513-1812AUT000981

PATIENT
  Age: 52 Year
  Sex: Male
  Weight: 90 kg

DRUGS (3)
  1. JANUVIA [Suspect]
     Active Substance: SITAGLIPTIN PHOSPHATE
     Indication: DIABETES MELLITUS
     Dosage: 7 TABLETS ON SUNDAY
     Route: 048
     Dates: start: 2013
  2. JANUMET [Suspect]
     Active Substance: METFORMIN HYDROCHLORIDE\SITAGLIPTIN PHOSPHATE
     Dosage: 7 TABLETS ON SUNDAY
     Route: 048
     Dates: start: 2013
  3. JANUVIA [Suspect]
     Active Substance: SITAGLIPTIN PHOSPHATE
     Dosage: 100 MILLIGRAM, IN THE MORNING
     Route: 048
     Dates: start: 20160701

REACTIONS (3)
  - Intentional product misuse [Unknown]
  - Overdose [Unknown]
  - Blood glucose increased [Recovered/Resolved]

NARRATIVE: CASE EVENT DATE: 2013
